FAERS Safety Report 17229477 (Version 1)
Quarter: 2019Q4

REPORT INFORMATION
  Report Type: Spontaneous
  Country: US (occurrence: US)
  Receive Date: 20191209
  Receipt Date: 20191209
  Transmission Date: 20200122
  Serious: No
  Sender: FDA-Public Use
  Company Number: None

PATIENT

DRUGS (3)
  1. METOPROL SUC TAB 200MG [Suspect]
     Active Substance: METOPROLOL SUCCINATE
     Dosage: ?          QUANTITY:200 MG MILLIGRAM(S);?
     Route: 048
     Dates: start: 20191023, end: 20191118
  2. METOPROLOL (SIC)SUC TAB 100MG [Suspect]
     Active Substance: METOPROLOL SUCCINATE
     Indication: BLOOD PRESSURE MEASUREMENT
     Dosage: ?          QUANTITY:100 MG MILLIGRAM(S);?
     Route: 048
     Dates: start: 20191023, end: 20191118
  3. METOPROLOL SUC TAB 200MG [Suspect]
     Active Substance: METOPROLOL SUCCINATE
     Indication: BLOOD PRESSURE MEASUREMENT
     Dosage: ?          QUANTITY:200 MG MILLIGRAM(S);?
     Route: 048
     Dates: start: 20191023, end: 20191118

REACTIONS (4)
  - Ill-defined disorder [None]
  - Product formulation issue [None]
  - Inability to afford medication [None]
  - Pain [None]
